FAERS Safety Report 13281876 (Version 2)
Quarter: 2017Q2

REPORT INFORMATION
  Report Type: Spontaneous
  Country: GB (occurrence: GB)
  Receive Date: 20170301
  Receipt Date: 20170411
  Transmission Date: 20170830
  Serious: Yes (Death, Other)
  Sender: FDA-Public Use
  Company Number: GB-SUN PHARMACEUTICAL INDUSTRIES LTD-2017RR-134087

PATIENT
  Sex: Female

DRUGS (2)
  1. CARBOPLATIN. [Suspect]
     Active Substance: CARBOPLATIN
     Indication: PRODUCT USED FOR UNKNOWN INDICATION
     Dosage: COMPOUNDED WITH 5% GLUCOSE
     Route: 065
     Dates: start: 20170120, end: 20170120
  2. BAXTER HEALTHCARE GLUCOSE [Suspect]
     Active Substance: DEXTROSE
     Indication: MEDICATION DILUTION
     Dosage: COMPOUNDED WITH CARBOPLATIN
     Route: 065
     Dates: start: 20170120, end: 20170120

REACTIONS (3)
  - Death [Fatal]
  - Product preparation error [Unknown]
  - Poor quality drug administered [Unknown]
